FAERS Safety Report 6280451-3 (Version None)
Quarter: 2009Q3

REPORT INFORMATION
  Report Type: 
  Country: None (occurrence: None)
  Receive Date: 20090724
  Receipt Date: 20081212
  Transmission Date: 20100115
  Serious: No
  Sender: FDA-Public Use
  Company Number: A0724620A

PATIENT
  Age: 42 Year
  Sex: Male
  Weight: 184.1 kg

DRUGS (10)
  1. AVANDIA [Suspect]
     Indication: DIABETES MELLITUS
     Dosage: 8MG PER DAY
     Route: 048
     Dates: start: 19990701, end: 20070101
  2. GLUCOPHAGE [Concomitant]
     Dates: start: 19990601, end: 20010101
  3. METFORMIN HCL [Concomitant]
     Dates: start: 20030501
  4. AMARYL [Concomitant]
     Dates: start: 20030501
  5. ATENOLOL [Concomitant]
  6. LIPITOR [Concomitant]
  7. ZOCOR [Concomitant]
     Dates: start: 20070201, end: 20071101
  8. VASOTEC [Concomitant]
  9. NABUMETONE [Concomitant]
  10. ASPIRIN [Concomitant]

REACTIONS (2)
  - OBESITY [None]
  - WEIGHT INCREASED [None]
